FAERS Safety Report 10266011 (Version 1)
Quarter: 2014Q2

REPORT INFORMATION
  Report Type: Spontaneous
  Country: US (occurrence: US)
  Receive Date: 20140627
  Receipt Date: 20140627
  Transmission Date: 20141212
  Serious: Yes (Hospitalization)
  Sender: FDA-Public Use
  Company Number: US-PFIZER INC-2014172616

PATIENT
  Age: 63 Year
  Sex: Female

DRUGS (5)
  1. METFORMIN HCL [Suspect]
     Indication: DIABETES MELLITUS
     Dosage: UNK
  2. GLIBENCLAMIDE [Suspect]
     Indication: DIABETES MELLITUS
     Dosage: UNK
  3. HYDROCHLOROTHIAZIDE [Concomitant]
     Dosage: UNK
  4. TRIAMTERENE [Concomitant]
     Dosage: UNK
  5. LISINOPRIL [Concomitant]
     Dosage: UNK

REACTIONS (3)
  - Hypoglycaemia [Unknown]
  - Hemiparesis [Recovered/Resolved]
  - Renal failure acute [Recovered/Resolved]
